FAERS Safety Report 11585593 (Version 1)
Quarter: 2015Q4

REPORT INFORMATION
  Report Type: Spontaneous
  Country: US (occurrence: US)
  Receive Date: 20151001
  Receipt Date: 20151001
  Transmission Date: 20160304
  Serious: No
  Sender: FDA-Public Use
  Company Number: US-ASTRAZENECA-2015SE92671

PATIENT
  Sex: Female
  Weight: 93 kg

DRUGS (7)
  1. GLUCOPHAGE (METFORMIN) [Concomitant]
     Indication: TYPE 2 DIABETES MELLITUS
     Route: 048
  2. PIOGLITAZONE. [Concomitant]
     Active Substance: PIOGLITAZONE
     Route: 048
  3. CENTRUM SILVER MULTIVITAMIN [Concomitant]
     Dosage: DAILY
     Route: 048
  4. ASPIRIN. [Concomitant]
     Active Substance: ASPIRIN
     Route: 048
  5. SIMVASTATIN. [Concomitant]
     Active Substance: SIMVASTATIN
     Route: 048
  6. BYETTA [Suspect]
     Active Substance: EXENATIDE
     Indication: TYPE 2 DIABETES MELLITUS
     Route: 058
  7. LISINOPRIL. [Suspect]
     Active Substance: LISINOPRIL
     Indication: BLOOD PRESSURE ABNORMAL
     Route: 048

REACTIONS (3)
  - Blood glucose increased [Recovered/Resolved]
  - Drug dose omission [Unknown]
  - Product quality issue [Unknown]
